FAERS Safety Report 7771073-3 (Version None)
Quarter: 2011Q3

REPORT INFORMATION
  Report Type: 
  Country: None (occurrence: None)
  Receive Date: 20110922
  Receipt Date: 20110603
  Transmission Date: 20111222
  Serious: Yes (Other)
  Sender: FDA-Public Use
  Company Number: US-ASTRAZENECA-2011SE34290

PATIENT
  Age: 28 Year
  Sex: Female

DRUGS (2)
  1. XANAX [Concomitant]
  2. SEROQUEL XR [Suspect]
     Indication: DEPRESSION
     Route: 048

REACTIONS (2)
  - SUICIDE ATTEMPT [None]
  - DRUG DOSE OMISSION [None]
